FAERS Safety Report 9723210 (Version 1)
Quarter: 2013Q4

REPORT INFORMATION
  Report Type: Spontaneous
  Country: US (occurrence: US)
  Receive Date: 20131202
  Receipt Date: 20131202
  Transmission Date: 20140711
  Serious: Yes (Hospitalization)
  Sender: FDA-Public Use
  Company Number: US-NOVOPROD-393679

PATIENT
  Age: 51 Year
  Sex: Male

DRUGS (1)
  1. VICTOZA [Suspect]
     Indication: TYPE 1 DIABETES MELLITUS
     Dosage: 1.2MG
     Route: 058
     Dates: end: 20131016

REACTIONS (8)
  - Yellow skin [Unknown]
  - Ocular icterus [Unknown]
  - Abdominal pain upper [Unknown]
  - Decreased appetite [Unknown]
  - Abdominal distension [Unknown]
  - Nausea [Unknown]
  - Headache [Unknown]
  - Off label use [Unknown]
